FAERS Safety Report 17482733 (Version 7)
Quarter: 2020Q3

REPORT INFORMATION
  Report Type: Report from Study
  Country: US (occurrence: US)
  Receive Date: 20200302
  Receipt Date: 20200911
  Transmission Date: 20201102
  Serious: No
  Sender: FDA-Public Use
  Company Number: NVSC2020US057841

PATIENT
  Sex: Female

DRUGS (2)
  1. COSENTYX [Suspect]
     Active Substance: SECUKINUMAB
     Indication: PSORIASIS
     Dosage: 300 MG, QW, (ONCE WEEKLY FOR 5 WEEKS (LOADING),THEN ONCE EVERY 4 WEEKS(MAINTENANCE)
     Route: 058
     Dates: start: 20200120
  2. COSENTYX [Suspect]
     Active Substance: SECUKINUMAB
     Indication: PSORIASIS
     Dosage: 300 MG, QW (ONCE WEEKLY FOR 5 WEEKS (LOADING),THEN ONCE EVERY 4 WEEKS(MAINTENANCE))
     Route: 058

REACTIONS (7)
  - Muscular weakness [Recovered/Resolved]
  - Injection site haemorrhage [Unknown]
  - Headache [Recovered/Resolved]
  - Acne [Unknown]
  - Menstrual disorder [Unknown]
  - Injection site irritation [Unknown]
  - Psoriasis [Unknown]
